FAERS Safety Report 11421160 (Version 2)
Quarter: 2015Q3

REPORT INFORMATION
  Report Type: Spontaneous
  Country: US (occurrence: US)
  Receive Date: 20150826
  Receipt Date: 20150908
  Transmission Date: 20151125
  Serious: Yes (Other)
  Sender: FDA-Public Use
  Company Number: US-LPDUSPRD-20150637

PATIENT
  Sex: Female

DRUGS (1)
  1. PHENYTOIN SODIUM INJECTION (40042-009-02) [Suspect]
     Active Substance: PHENYTOIN SODIUM
     Dosage: DOSE NOT PROVIDED
     Route: 065

REACTIONS (3)
  - Hypotension [Unknown]
  - Toxicity to various agents [Unknown]
  - Bradycardia [Unknown]
